FAERS Safety Report 8807153 (Version 1)
Quarter: 2012Q4

REPORT INFORMATION
  Report Type: 
  Country: TW (occurrence: TW)
  Receive Date: 20120925
  Receipt Date: 20120925
  Transmission Date: 20130627
  Serious: Yes (Hospitalization)
  Sender: FDA-Public Use
  Company Number: TW-WATSON-2012-16147

PATIENT
  Age: 30 Year
  Sex: Female

DRUGS (3)
  1. VENLAFAXINE HYDROCHLORIDE [Suspect]
     Indication: SUICIDE ATTEMPT
     Dosage: UNK
     Route: 048
  2. BUPROPION HYDROCHLORIDE [Suspect]
     Indication: SUICIDE ATTEMPT
     Dosage: UNK
     Route: 048
  3. LORAZEPAM [Suspect]
     Indication: SUICIDE ATTEMPT
     Dosage: UNK
     Route: 048

REACTIONS (7)
  - Overdose [Recovered/Resolved with Sequelae]
  - Central nervous system necrosis [Recovered/Resolved with Sequelae]
  - Serotonin syndrome [Recovered/Resolved with Sequelae]
  - Tachycardia [Recovered/Resolved with Sequelae]
  - Electrocardiogram QRS complex prolonged [Recovered/Resolved with Sequelae]
  - Electrocardiogram abnormal [Recovered/Resolved with Sequelae]
  - Respiratory distress [Recovered/Resolved with Sequelae]
